FAERS Safety Report 10150346 (Version 1)
Quarter: 2014Q2

REPORT INFORMATION
  Report Type: Spontaneous
  Country: US (occurrence: US)
  Receive Date: 20140502
  Receipt Date: 20140502
  Transmission Date: 20141212
  Serious: Yes (Hospitalization, Other)
  Sender: FDA-Public Use
  Company Number: PHEH2014US008608

PATIENT
  Age: 45 Year
  Sex: Female
  Weight: 45.4 kg

DRUGS (8)
  1. GILENYA [Suspect]
     Indication: MULTIPLE SCLEROSIS
     Route: 048
  2. AMPYRA [Suspect]
     Indication: GAIT DISTURBANCE
     Dosage: 10 MG, BID
     Route: 048
     Dates: end: 20140326
  3. DIMETHYL FUMARATE [Concomitant]
  4. BACLOFEN [Concomitant]
  5. LEXAPRO [Concomitant]
     Dosage: 20 MG, UNK
  6. OXYBUTYNIN [Concomitant]
     Dosage: 15 MG, UNK
  7. AMANTADINE [Concomitant]
     Dosage: 100 MG, UNK
  8. PROVIGIL//MODAFINIL [Concomitant]
     Dosage: 200 MG, UNK

REACTIONS (2)
  - Cardiac failure [Recovering/Resolving]
  - Muscular weakness [Not Recovered/Not Resolved]
